FAERS Safety Report 6504823-4 (Version None)
Quarter: 2009Q4

REPORT INFORMATION
  Report Type: 
  Country: None (occurrence: None)
  Receive Date: 20091215
  Receipt Date: 20091111
  Transmission Date: 20100525
  Serious: Yes (Hospitalization)
  Sender: FDA-Public Use
  Company Number: AE-2009-295

PATIENT
  Age: 39 Year
  Sex: Female

DRUGS (8)
  1. FUROSEMIDE [Suspect]
     Dosage: 80MG
     Dates: start: 20070527, end: 20070627
  2. BROMPERIDOL [Suspect]
     Dosage: 10MG
     Dates: start: 20070527, end: 20070627
  3. CLOZAPINE [Suspect]
     Dosage: 150MG
     Dates: start: 20070527, end: 20070627
  4. VALPROIC ACID [Suspect]
     Dosage: 1000MG
     Dates: start: 20070527, end: 20070627
  5. ARIPIPRAZOLE [Concomitant]
  6. FOLIC ACID [Concomitant]
  7. PANTOPRAZOLE [Concomitant]
  8. PIRENZEPINE DIHYDROCHLORIDE [Concomitant]

REACTIONS (2)
  - DRUG INTERACTION [None]
  - ELECTROCARDIOGRAM QT PROLONGED [None]
